FAERS Safety Report 23144821 (Version 3)
Quarter: 2024Q1

REPORT INFORMATION
  Report Type: Spontaneous
  Country: US (occurrence: US)
  Receive Date: 20231103
  Receipt Date: 20240111
  Transmission Date: 20240410
  Serious: Yes (Hospitalization, Other)
  Sender: FDA-Public Use
  Company Number: US-BAYER-2023A152683

PATIENT
  Age: 15 Year
  Sex: Male

DRUGS (7)
  1. JIVI [Suspect]
     Active Substance: DAMOCTOCOG ALFA PEGOL
     Dates: start: 20231024, end: 20231024
  2. JIVI [Suspect]
     Active Substance: DAMOCTOCOG ALFA PEGOL
     Dosage: 500 IU INTERNATIONAL UNIT(S), BIW
     Route: 042
     Dates: start: 201702
  3. JIVI [Suspect]
     Active Substance: DAMOCTOCOG ALFA PEGOL
     Dosage: 1000 IU INTERNATIONAL UNIT(S), BIW
     Route: 042
     Dates: start: 201702
  4. HYDROXYZINE [Concomitant]
     Active Substance: HYDROXYZINE HYDROCHLORIDE
  5. HEMLIBRA [Concomitant]
     Active Substance: EMICIZUMAB-KXWH
  6. CELECOXIB [Concomitant]
     Active Substance: CELECOXIB
  7. ALTUVIIIO [Concomitant]
     Active Substance: EFANESOCTOCOG ALFA

REACTIONS (11)
  - Headache [None]
  - Paraesthesia [None]
  - Hyperhidrosis [None]
  - Hyperhidrosis [None]
  - Feeling cold [None]
  - Hypotension [Recovered/Resolved]
  - Chest pain [Recovered/Resolved]
  - Insomnia [None]
  - Inappropriate schedule of product administration [None]
  - Pain in extremity [None]
  - Heart rate increased [None]

NARRATIVE: CASE EVENT DATE: 20231024
